FAERS Safety Report 16379630 (Version 1)
Quarter: 2019Q2

REPORT INFORMATION
  Report Type: Spontaneous
  Country: BE (occurrence: BE)
  Receive Date: 20190531
  Receipt Date: 20190531
  Transmission Date: 20190711
  Serious: Yes (Hospitalization)
  Sender: FDA-Public Use
  Company Number: BE-BAUSCH-BL-2019-015516

PATIENT

DRUGS (1)
  1. MINIMS CYCLOPENTOLATE CHLORHYDRATE 0,5%, COLLYRE EN SOLUTION [Suspect]
     Active Substance: CYCLOPENTOLATE HYDROCHLORIDE
     Indication: PRODUCT USED FOR UNKNOWN INDICATION
     Dosage: TOTAL
     Route: 047

REACTIONS (3)
  - Dry mouth [Unknown]
  - Thirst [Unknown]
  - Hallucination [Unknown]
